FAERS Safety Report 8819702 (Version 2)
Quarter: 2012Q4

REPORT INFORMATION
  Report Type: 
  Country: US (occurrence: US)
  Receive Date: 20121001
  Receipt Date: 20121012
  Transmission Date: 20130627
  Serious: Yes (Death, Hospitalization)
  Sender: FDA-Public Use
  Company Number: US-CELGENEUS-163-21880-12064022

PATIENT
  Age: 62 None
  Sex: Male

DRUGS (5)
  1. REVLIMID [Suspect]
     Indication: IGG MYELOMA
     Dosage: 25 Milligram
     Route: 048
     Dates: start: 201011
  2. REVLIMID [Suspect]
     Dosage: 10 Milligram
     Route: 048
     Dates: start: 20120411, end: 20120531
  3. REVLIMID [Suspect]
     Dosage: 25 Milligram
     Route: 048
     Dates: start: 201206
  4. VELCADE [Concomitant]
     Indication: IGG MYELOMA
     Dosage: 2 Milligram
     Route: 041
     Dates: start: 20111212, end: 20120518
  5. DEXAMETHASONE [Concomitant]
     Indication: IGG MYELOMA
     Route: 065

REACTIONS (3)
  - Plasma cell myeloma [Fatal]
  - Fatigue [Unknown]
  - Decreased appetite [Unknown]
